FAERS Safety Report 5220485-0 (Version None)
Quarter: 2007Q1

REPORT INFORMATION
  Report Type: 
  Country: None (occurrence: None)
  Receive Date: 20070125
  Receipt Date: 20070125
  Transmission Date: 20070707
  Serious: Yes (Hospitalization)
  Sender: FDA-Public Use
  Company Number: None

PATIENT
  Sex: Male

DRUGS (3)
  1. COCAINE [Suspect]
     Route: 065
  2. ALCOHOL [Suspect]
     Route: 065
  3. BLOOD PRESSURE MEDS [Concomitant]

REACTIONS (3)
  - ABNORMAL BEHAVIOUR [None]
  - AGITATION [None]
  - MENTAL STATUS CHANGES [None]
